FAERS Safety Report 8104455-0 (Version None)
Quarter: 2012Q1

REPORT INFORMATION
  Report Type: 
  Country: None (occurrence: None)
  Receive Date: 20120130
  Receipt Date: 20120119
  Transmission Date: 20120608
  Serious: Yes (Life-Threatening, Hospitalization, Other)
  Sender: FDA-Public Use
  Company Number: AUR-APL-2010-01799

PATIENT
  Age: 75 Year
  Sex: Male

DRUGS (5)
  1. DIGITOXIN INJ [Concomitant]
  2. RAMIPRIL [Suspect]
     Indication: CARDIAC FAILURE
     Dosage: 10 MG (10 MG, 1 IN 1 D),
  3. METOPROLOL TARTRATE [Suspect]
     Indication: CARDIAC FAILURE
     Dosage: 100 MG (100 MG, 1 IN 1 D),
  4. SPIRONOLACTONE [Suspect]
     Indication: CARDIAC FAILURE
     Dosage: 25 MG (25 MG, 1 IN 1 D),
  5. BUMETANID (BUMETANIDE) [Concomitant]

REACTIONS (24)
  - ELECTROCARDIOGRAM T WAVE AMPLITUDE INCREASED [None]
  - RENAL FAILURE ACUTE [None]
  - RENAL FAILURE [None]
  - HYPOVOLAEMIA [None]
  - HYPOXIA [None]
  - DEPRESSED LEVEL OF CONSCIOUSNESS [None]
  - HYPERTENSION [None]
  - CARDIOGENIC SHOCK [None]
  - HAEMODIALYSIS [None]
  - CONFUSIONAL STATE [None]
  - ELECTROCARDIOGRAM QRS COMPLEX PROLONGED [None]
  - GENERAL PHYSICAL HEALTH DETERIORATION [None]
  - BUNDLE BRANCH BLOCK LEFT [None]
  - FLUID INTAKE REDUCED [None]
  - EJECTION FRACTION DECREASED [None]
  - ACUTE LEFT VENTRICULAR FAILURE [None]
  - BRADYCARDIA [None]
  - METABOLIC ACIDOSIS [None]
  - MITRAL VALVE DISEASE [None]
  - PERIPHERAL COLDNESS [None]
  - HYPERKALAEMIA [None]
  - DRUG INTERACTION [None]
  - CARDIOACTIVE DRUG LEVEL INCREASED [None]
  - HYPOPHAGIA [None]
